FAERS Safety Report 7878085-X (Version None)
Quarter: 2011Q4

REPORT INFORMATION
  Report Type: 
  Country: None (occurrence: None)
  Receive Date: 20111101
  Receipt Date: 20111022
  Transmission Date: 20120403
  Serious: No
  Sender: FDA-Public Use
  Company Number: US-BIOGENIDEC-2011BI015706

PATIENT
  Sex: Female

DRUGS (3)
  1. TYSABRI [Suspect]
     Indication: MULTIPLE SCLEROSIS
     Route: 042
     Dates: start: 20100322
  2. TYSABRI [Suspect]
     Route: 042
     Dates: start: 20070201, end: 20090522
  3. TYSABRI [Suspect]
     Route: 042
     Dates: start: 20050131

REACTIONS (6)
  - PARAESTHESIA [None]
  - PAIN [None]
  - ASTHENIA [None]
  - FATIGUE [None]
  - PAIN IN EXTREMITY [None]
  - HYPOAESTHESIA [None]
